FAERS Safety Report 6965664-7 (Version None)
Quarter: 2010Q3

REPORT INFORMATION
  Report Type: 
  Country: None (occurrence: None)
  Receive Date: 20100903
  Receipt Date: 20100831
  Transmission Date: 20110219
  Serious: Yes (Life-Threatening)
  Sender: FDA-Public Use
  Company Number: JP-EISAI INC.-E2090-01200-SPO-JP

PATIENT
  Sex: Male

DRUGS (27)
  1. EXCEGRAN [Suspect]
     Route: 048
     Dates: start: 20100424, end: 20100511
  2. PHENYTOIN [Suspect]
     Route: 042
     Dates: start: 20100425, end: 20100425
  3. PROHEPARUM [Concomitant]
     Route: 048
  4. CERNILTON [Concomitant]
     Route: 048
     Dates: end: 20100526
  5. GLYCYRON [Concomitant]
  6. ALDACTONE [Concomitant]
     Route: 048
     Dates: end: 20100526
  7. ZYRTEC [Concomitant]
     Route: 048
     Dates: end: 20100526
  8. URIEF [Concomitant]
     Route: 048
  9. HERBESSER R [Concomitant]
     Route: 048
     Dates: end: 20100526
  10. MEXITIL [Concomitant]
     Dates: end: 20100526
  11. DIOVAN [Concomitant]
     Route: 048
     Dates: end: 20100526
  12. LANSOPRAZOLE [Concomitant]
     Route: 048
     Dates: end: 20100526
  13. SOLDACTONE [Concomitant]
     Route: 048
  14. LASIX [Concomitant]
  15. MANNIGEN [Concomitant]
  16. HANP [Concomitant]
  17. PROPOFOL [Concomitant]
  18. GLUCONSAN K [Concomitant]
     Route: 048
  19. GASMOTIN [Concomitant]
     Route: 048
  20. ULCERLMIN [Concomitant]
     Route: 048
  21. DAIKENCHUTO [Concomitant]
     Route: 048
  22. CEFTAZIDIME [Concomitant]
  23. VANCOMYCIN [Concomitant]
  24. CEFAPICAL [Concomitant]
  25. MIDAZOLAM HCL [Concomitant]
  26. RECOMODULIM [Concomitant]
  27. PHENYTOIN SODIUM [Concomitant]
     Route: 041
     Dates: start: 20100423, end: 20100423

REACTIONS (1)
  - INTERSTITIAL LUNG DISEASE [None]
